FAERS Safety Report 24567089 (Version 1)
Quarter: 2024Q4

REPORT INFORMATION
  Report Type: Spontaneous
  Country: SE (occurrence: SE)
  Receive Date: 20241030
  Receipt Date: 20241030
  Transmission Date: 20250115
  Serious: Yes (Other)
  Sender: PFIZER
  Company Number: None

PATIENT
  Age: 49 Year
  Sex: Female

DRUGS (10)
  1. PREDNISOLONE [Suspect]
     Active Substance: PREDNISOLONE
     Indication: Follicular lymphoma
     Dosage: UNK (A PART OF 6 R- CHOEP-CURES 2017-18)
     Dates: start: 2017, end: 2018
  2. VINCRISTINE SULFATE [Suspect]
     Active Substance: VINCRISTINE SULFATE
     Indication: Follicular lymphoma
     Dosage: UNK (A PART OF 6 R- CHOEP-CURES 2017-18)
     Dates: start: 2017, end: 2018
  3. BENDAMUSTINE [Suspect]
     Active Substance: BENDAMUSTINE
     Dosage: UNK (A PART OF FOUR R-BENDA-CURES 2018)
     Dates: start: 2018, end: 2018
  4. RITUXIMAB [Suspect]
     Active Substance: RITUXIMAB
     Dosage: UNK (A PART OF 6 R- CHOEP-CURES 2017-18, AND 4 R-BENDA-CURES 2018)
     Dates: start: 2017, end: 2018
  5. ETOPOSIDE [Suspect]
     Active Substance: ETOPOSIDE
     Dosage: UNK (A PART OF 6 R- CHOEP-CURES 2017-18)
     Dates: start: 2017, end: 2018
  6. YESCARTA [Suspect]
     Active Substance: AXICABTAGENE CILOLEUCEL
     Dosage: UNK (AS A PART OF CAR-T)
     Dates: start: 2021, end: 2021
  7. OBINUTUZUMAB [Suspect]
     Active Substance: OBINUTUZUMAB
     Dosage: UNK (OBINOTUZUMAB + LENALIDOMIDE)
     Dates: start: 2020, end: 2020
  8. LENALIDOMIDE [Suspect]
     Active Substance: LENALIDOMIDE
     Dosage: UNK (OBINOTUZUMAB + LENALIDOMIDE)
     Dates: start: 2020, end: 2020
  9. CYCLOPHOSPHAMIDE [Suspect]
     Active Substance: CYCLOPHOSPHAMIDE
     Indication: Follicular lymphoma
     Dosage: UNK (A PART OF 6 R- CHOEP-CURES 2017-18)
     Dates: start: 2017, end: 2017
  10. DOXORUBICIN [Suspect]
     Active Substance: DOXORUBICIN
     Indication: Follicular lymphoma
     Dosage: UNK (A PART OF 6 R- CHOEP-CURES 2017-18)
     Dates: start: 2017, end: 2018

REACTIONS (2)
  - Myelodysplastic syndrome [Unknown]
  - Second primary malignancy [Unknown]

NARRATIVE: CASE EVENT DATE: 20240101
